FAERS Safety Report 15005146 (Version 3)
Quarter: 2018Q3

REPORT INFORMATION
  Report Type: Spontaneous
  Country: BR (occurrence: BR)
  Receive Date: 20180613
  Receipt Date: 20180703
  Transmission Date: 20181010
  Serious: Yes (Hospitalization, Other)
  Sender: FDA-Public Use
  Company Number: BR-GLAXOSMITHKLINE-BR2018GSK101248

PATIENT
  Sex: Female
  Weight: 10.5 kg

DRUGS (6)
  1. PREDNISOLONE. [Suspect]
     Active Substance: PREDNISOLONE
     Indication: COUGH
     Dosage: 3.5 ML, UNK
     Route: 048
     Dates: start: 20180524, end: 20180530
  2. AZITROMYCINE [Suspect]
     Active Substance: AZITHROMYCIN
     Indication: INFECTION
     Dosage: 2.5 ML, UNK
     Route: 048
     Dates: start: 20180524, end: 20180526
  3. OSELTAMIVIR [Concomitant]
     Active Substance: OSELTAMIVIR
     Indication: COUGH
     Dosage: 1 DF, BID,TABLET
     Route: 048
     Dates: end: 20180603
  4. SERETIDE [Suspect]
     Active Substance: FLUTICASONE PROPIONATE\SALMETEROL XINAFOATE
     Indication: BRONCHIOLITIS
     Dosage: 2 DF, BID,APPLICATION(S)
     Route: 055
     Dates: start: 20180602
  5. AEROLIN [Suspect]
     Active Substance: ALBUTEROL
     Indication: BRONCHIOLITIS
     Dosage: 5 DF, Z,APPLICATION(S)
     Route: 055
     Dates: start: 20180602
  6. FLIXOTIDE [Suspect]
     Active Substance: FLUTICASONE PROPIONATE
     Indication: BRONCHIOLITIS
     Dosage: 1 DF, BID,APPLICATION(S)
     Route: 055
     Dates: end: 20180602

REACTIONS (6)
  - Underdose [Unknown]
  - Product prescribing issue [Recovered/Resolved]
  - Overdose [Unknown]
  - Product use in unapproved indication [Unknown]
  - Hospitalisation [Recovered/Resolved]
  - Drug administered to patient of inappropriate age [Unknown]
